FAERS Safety Report 15487319 (Version 1)
Quarter: 2018Q4

REPORT INFORMATION
  Report Type: Spontaneous
  Country: US (occurrence: US)
  Receive Date: 20181011
  Receipt Date: 20181011
  Transmission Date: 20190205
  Serious: Yes (Death, Hospitalization, Other)
  Sender: FDA-Public Use
  Company Number: US-ASTRAZENECA-2018SF30827

PATIENT
  Sex: Male

DRUGS (4)
  1. SEROQUEL [Suspect]
     Active Substance: QUETIAPINE FUMARATE
     Indication: ANXIETY
     Dosage: REDUCED DOSE
     Route: 048
     Dates: start: 201712
  2. SEROQUEL [Suspect]
     Active Substance: QUETIAPINE FUMARATE
     Indication: DELIRIUM
     Dosage: REDUCED DOSE
     Route: 048
     Dates: start: 201712
  3. SEROQUEL [Suspect]
     Active Substance: QUETIAPINE FUMARATE
     Indication: DELIRIUM
     Dosage: UNKNOWN, ONCE A DAY
     Route: 048
     Dates: start: 201704
  4. SEROQUEL [Suspect]
     Active Substance: QUETIAPINE FUMARATE
     Indication: ANXIETY
     Dosage: UNKNOWN, ONCE A DAY
     Route: 048
     Dates: start: 201704

REACTIONS (18)
  - Constipation [Unknown]
  - Gout [Unknown]
  - Diarrhoea [Unknown]
  - Nausea [Unknown]
  - Gait disturbance [Unknown]
  - Death [Fatal]
  - Hip fracture [Unknown]
  - Influenza [Unknown]
  - Pneumonia [Unknown]
  - Asthenia [Unknown]
  - Dizziness [Unknown]
  - Fall [Unknown]
  - Herpes zoster [Unknown]
  - Eye infection [Unknown]
  - Product use in unapproved indication [Unknown]
  - Weight decreased [Unknown]
  - Choking [Unknown]
  - Off label use [Unknown]

NARRATIVE: CASE EVENT DATE: 201706
